FAERS Safety Report 5692115-5 (Version None)
Quarter: 2008Q2

REPORT INFORMATION
  Report Type: 
  Country: None (occurrence: None)
  Receive Date: 20080402
  Receipt Date: 20080327
  Transmission Date: 20081010
  Serious: Yes (Hospitalization, Other)
  Sender: FDA-Public Use
  Company Number: US-ASTRAZENECA-2008UW06281

PATIENT
  Age: 52 Year
  Sex: Female
  Weight: 106.6 kg

DRUGS (8)
  1. TAMOXIFEN CITRATE [Suspect]
     Indication: BREAST CANCER
  2. LEVOTHYROXINE SODIUM [Concomitant]
  3. ATENOLOL [Concomitant]
  4. LEXAPRO [Concomitant]
  5. EVISTA [Concomitant]
  6. NEXIUM [Concomitant]
  7. MULTI-VITAMIN [Concomitant]
  8. CALCIUM [Concomitant]

REACTIONS (3)
  - BREAST CANCER RECURRENT [None]
  - METASTASES TO LUNG [None]
  - SURGERY [None]
